FAERS Safety Report 15884985 (Version 4)
Quarter: 2019Q1

REPORT INFORMATION
  Report Type: Report from Study
  Country: BE (occurrence: BE)
  Receive Date: 20190129
  Receipt Date: 20190222
  Transmission Date: 20190417
  Serious: Yes (Death)
  Sender: FDA-Public Use
  Company Number: BE-PFIZER INC-2019036996

PATIENT
  Age: 75 Year
  Sex: Male
  Weight: 100 kg

DRUGS (11)
  1. ATORVASTATIN [Concomitant]
     Active Substance: ATORVASTATIN
     Indication: BLOOD CHOLESTEROL INCREASED
     Dosage: 40 MG, 1X/DAY
     Route: 048
     Dates: start: 20151012
  2. PANTOMED [PANTOPRAZOLE SODIUM SESQUIHYDRATE] [Concomitant]
     Indication: GASTRIC PH DECREASED
     Dosage: 20 MG, 1X/DAY
     Route: 048
     Dates: start: 20171128
  3. AZACITIDINE. [Suspect]
     Active Substance: AZACITIDINE
     Indication: ACUTE MYELOID LEUKAEMIA
     Dosage: 150 MG, 1X/DAY FOR ONE WEEK (D1-D7)
     Route: 058
     Dates: start: 20181120, end: 20181126
  4. INSULATARD [INSULIN ISOPHANE PORCINE] [Concomitant]
     Indication: DIABETES MELLITUS
     Dosage: DEPENDING IN LEVEL (IU)
     Route: 058
     Dates: start: 20100217
  5. GLASDEGIB [Suspect]
     Active Substance: GLASDEGIB
     Indication: ACUTE MYELOID LEUKAEMIA
     Dosage: 100 MG, 1X/DAY
     Route: 048
     Dates: start: 20181023
  6. ASAFLOW [Concomitant]
     Active Substance: ASPIRIN
     Dosage: 80 MG, 1X/DAY
     Route: 048
     Dates: start: 20100416
  7. SEREVENT DISKUS [Concomitant]
     Active Substance: SALMETEROL XINAFOATE
     Indication: DYSPNOEA
     Dosage: 50 UG, 1X/DAY
     Route: 055
     Dates: start: 20171128
  8. GLUCOPHAGE [Concomitant]
     Active Substance: METFORMIN HYDROCHLORIDE
     Indication: DIABETES MELLITUS
     Dosage: 850 MG, 3X/DAY
     Route: 048
     Dates: start: 20050315
  9. FLIXOTIDE [Concomitant]
     Active Substance: FLUTICASONE PROPIONATE
     Indication: DYSPNOEA
     Dosage: 250, 2X/DAY
     Route: 055
     Dates: start: 20060508
  10. PROLOPA [Concomitant]
     Active Substance: BENSERAZIDE\LEVODOPA
     Indication: PARKINSON^S DISEASE
     Dosage: 125/25, 3X/DAY
     Route: 048
     Dates: start: 20130917
  11. NOVORAPID [Concomitant]
     Active Substance: INSULIN ASPART
     Indication: DIABETES MELLITUS
     Dosage: DEPENDING IN LEVEL (IU)
     Route: 058
     Dates: start: 20100217

REACTIONS (1)
  - Death [Fatal]

NARRATIVE: CASE EVENT DATE: 20181202
